FAERS Safety Report 9606050 (Version 1)
Quarter: 2013Q4

REPORT INFORMATION
  Report Type: Spontaneous
  Country: US (occurrence: US)
  Receive Date: 20131008
  Receipt Date: 20131008
  Transmission Date: 20140711
  Serious: No
  Sender: FDA-Public Use
  Company Number: US-AMGEN-USASP2013040430

PATIENT
  Age: 56 Year
  Sex: Female

DRUGS (7)
  1. PROLIA [Suspect]
     Indication: PRODUCT USED FOR UNKNOWN INDICATION
     Dosage: UNK
     Dates: start: 20121115
  2. PROLIA [Suspect]
     Dosage: UNK
     Dates: start: 20120517
  3. PROLIA [Suspect]
     Dosage: UNK
     Dates: start: 20111117
  4. PENTASA [Concomitant]
  5. ALIGN [Concomitant]
  6. CALCIUM [Concomitant]
  7. VITAMIN D                          /00107901/ [Concomitant]

REACTIONS (1)
  - Dermatitis [Unknown]
